FAERS Safety Report 7082756-5 (Version None)
Quarter: 2010Q4

REPORT INFORMATION
  Report Type: 
  Country: None (occurrence: None)
  Receive Date: 20101001
  Receipt Date: 20100623
  Transmission Date: 20110411
  Serious: No
  Sender: FDA-Public Use
  Company Number: 1000014683

PATIENT

DRUGS (1)
  1. BYSTOLIC [Suspect]
     Dosage: 5 MG (5 MG,1 IN 1 D) ; 10 MG (10 MG,1 IN 1 D)

REACTIONS (1)
  - BRADYCARDIA [None]
